FAERS Safety Report 4351131-6 (Version None)
Quarter: 2004Q2

REPORT INFORMATION
  Report Type: 
  Country: None (occurrence: None)
  Receive Date: 20040430
  Receipt Date: 20030808
  Transmission Date: 20050107
  Serious: Yes (Hospitalization)
  Sender: FDA-Public Use
  Company Number: US-MERCK-0308USA00966

PATIENT
  Age: 79 Year
  Sex: Male

DRUGS (2)
  1. [THERAPY UNSPECIFIED] [Concomitant]
     Route: 065
  2. ZOCOR [Suspect]
     Indication: HYPERCHOLESTEROLAEMIA
     Route: 048
     Dates: start: 20010813, end: 20020430

REACTIONS (14)
  - ANAEMIA [None]
  - BLOOD PARATHYROID HORMONE INCREASED [None]
  - BONE SCAN ABNORMAL [None]
  - CARDIAC FAILURE CONGESTIVE [None]
  - DELIRIUM [None]
  - DIABETES MELLITUS [None]
  - EYE DISORDER [None]
  - FALL [None]
  - MUSCULOSKELETAL DISCOMFORT [None]
  - PNEUMONIA [None]
  - RASH [None]
  - RENAL FAILURE ACUTE [None]
  - RHABDOMYOLYSIS [None]
  - SEPSIS [None]
